FAERS Safety Report 7433909-5 (Version None)
Quarter: 2011Q2

REPORT INFORMATION
  Report Type: 
  Country: None (occurrence: None)
  Receive Date: 20110420
  Receipt Date: 20110420
  Transmission Date: 20111010
  Serious: Yes (Other)
  Sender: FDA-Public Use
  Company Number: None

PATIENT
  Age: 54 Year
  Sex: Male
  Weight: 79.3795 kg

DRUGS (1)
  1. CREST PRO HEATH CREST [Suspect]
     Indication: DENTAL PLAQUE
     Dosage: I CAPFUL B.I.D. PO
     Route: 048
     Dates: start: 20110318, end: 20110418

REACTIONS (2)
  - TOOTH DISORDER [None]
  - TOOTH DISCOLOURATION [None]
